FAERS Safety Report 24696903 (Version 1)
Quarter: 2024Q4

REPORT INFORMATION
  Report Type: Spontaneous
  Country: CN (occurrence: CN)
  Receive Date: 20241204
  Receipt Date: 20241204
  Transmission Date: 20250114
  Serious: Yes (Disabling, Other)
  Sender: ELI LILLY AND COMPANY
  Company Number: CN-Merck Healthcare KGaA-2024062261

PATIENT
  Age: 52 Year
  Sex: Male
  Weight: 72 kg

DRUGS (8)
  1. ERBITUX [Suspect]
     Active Substance: CETUXIMAB
     Indication: Colon cancer metastatic
     Dosage: 900 MG, UNKNOWN
     Route: 041
     Dates: start: 20241023
  2. OXALIPLATIN [Suspect]
     Active Substance: OXALIPLATIN
     Indication: Colon cancer metastatic
     Dosage: 150 MG, DAILY
     Route: 041
     Dates: start: 20241023, end: 20241023
  3. FLUOROURACIL [Suspect]
     Active Substance: FLUOROURACIL
     Indication: Colon cancer metastatic
     Dosage: 4.5 G, QOD
     Route: 041
     Dates: start: 20241023, end: 20241025
  4. FLUOROURACIL [Suspect]
     Active Substance: FLUOROURACIL
     Dosage: .6 G, DAILY
     Route: 042
     Dates: start: 20241023, end: 20241023
  5. SODIUM CHLORIDE [Concomitant]
     Active Substance: SODIUM CHLORIDE
     Indication: Medication dilution
     Dosage: 400 ML, DAILY
     Route: 041
     Dates: start: 20241023, end: 20241023
  6. SODIUM CHLORIDE [Concomitant]
     Active Substance: SODIUM CHLORIDE
     Dosage: 20 ML, DAILY
     Route: 042
     Dates: start: 20241023, end: 20241023
  7. SODIUM CHLORIDE [Concomitant]
     Active Substance: SODIUM CHLORIDE
     Dosage: 280 ML, QOD
     Route: 040
     Dates: start: 20241023, end: 20241025
  8. DEXTROSE [Concomitant]
     Active Substance: DEXTROSE MONOHYDRATE
     Indication: Medication dilution
     Dosage: 500 ML, DAILY
     Route: 041
     Dates: start: 20241023, end: 20241023

REACTIONS (3)
  - Neutrophil count decreased [Recovering/Resolving]
  - Platelet count decreased [Recovering/Resolving]
  - White blood cell count decreased [Recovering/Resolving]

NARRATIVE: CASE EVENT DATE: 20241105
